FAERS Safety Report 4765598-2 (Version None)
Quarter: 2005Q3

REPORT INFORMATION
  Report Type: 
  Country: None (occurrence: None)
  Receive Date: 20050906
  Receipt Date: 20050819
  Transmission Date: 20060218
  Serious: Yes (Hospitalization, Other)
  Sender: FDA-Public Use
  Company Number: JP_050506664

PATIENT
  Age: 70 Year
  Sex: Female
  Weight: 58 kg

DRUGS (10)
  1. GEMZAR [Suspect]
     Indication: PANCREATIC CARCINOMA RECURRENT
     Dosage: 1200 MG OTHER
     Route: 050
     Dates: start: 20050407
  2. GEMZAR [Suspect]
     Indication: PANCREATIC CARCINOMA STAGE II
     Dosage: 1200 MG OTHER
     Route: 050
     Dates: start: 20050407
  3. VOLTAREN-XR [Concomitant]
  4. DUROTEP (FENTANYL /00174601/) [Concomitant]
  5. PRIMPERAN    /SCH/ (METOCLOPRAMIDE HYDROCHLORIDE) [Concomitant]
  6. PROMAC (POLAPREZINC) [Concomitant]
  7. FOIPAN (CAMOSTAT MESILATE) [Concomitant]
  8. EXCELASE [Concomitant]
  9. MAGMITT (MAGNESIUM OXIDE) [Concomitant]
  10. ZOFRAN ZYDIS (ONDANSETRON) [Concomitant]

REACTIONS (8)
  - AGEUSIA [None]
  - DYSGEUSIA [None]
  - MALIGNANT NEOPLASM PROGRESSION [None]
  - METASTASES TO LIVER [None]
  - NAUSEA [None]
  - ORAL MUCOSAL DISCOLOURATION [None]
  - STOMATITIS [None]
  - VOMITING [None]
